FAERS Safety Report 23329418 (Version 1)
Quarter: 2023Q4

REPORT INFORMATION
  Report Type: Spontaneous
  Country: US (occurrence: US)
  Receive Date: 20231222
  Receipt Date: 20231222
  Transmission Date: 20240109
  Serious: Yes (Other)
  Sender: FDA-Public Use
  Company Number: US-AUROBINDO-AUR-APL-2023-078991

PATIENT
  Age: 66 Year
  Sex: Male

DRUGS (1)
  1. WARFARIN SODIUM [Suspect]
     Active Substance: WARFARIN SODIUM
     Indication: Anticoagulant therapy
     Dosage: UNK
     Route: 065

REACTIONS (2)
  - Atheroembolism [Unknown]
  - Renal failure [Unknown]
